FAERS Safety Report 5689173-0 (Version None)
Quarter: 2008Q1

REPORT INFORMATION
  Report Type: 
  Country: None (occurrence: None)
  Receive Date: 20080331
  Receipt Date: 20080320
  Transmission Date: 20080703
  Serious: Yes (Life-Threatening, Hospitalization, Disabling)
  Sender: FDA-Public Use
  Company Number: ZA-GENENTECH-258380

PATIENT
  Sex: Male
  Weight: 90 kg

DRUGS (2)
  1. MABTHERA [Suspect]
     Indication: DRUG USE FOR UNKNOWN INDICATION
     Dosage: UNK, UNK
     Route: 042
     Dates: start: 20080301
  2. PHENERGAN HCL [Concomitant]
     Indication: DRUG USE FOR UNKNOWN INDICATION
     Dosage: UNK, UNK
     Dates: start: 20080301, end: 20080301

REACTIONS (6)
  - BLINDNESS [None]
  - CHILLS [None]
  - DIPLOPIA [None]
  - EYE SWELLING [None]
  - INTRACRANIAL PRESSURE INCREASED [None]
  - PRURITUS [None]
